FAERS Safety Report 6667700-4 (Version None)
Quarter: 2010Q2

REPORT INFORMATION
  Report Type: 
  Country: None (occurrence: None)
  Receive Date: 20100405
  Receipt Date: 20100329
  Transmission Date: 20101027
  Serious: Yes (Other)
  Sender: FDA-Public Use
  Company Number: GB-TEVA-229350ISR

PATIENT
  Age: 65 Year
  Sex: Female

DRUGS (1)
  1. DOXAZOSIN [Suspect]
     Route: 048

REACTIONS (1)
  - CONVULSION [None]
